FAERS Safety Report 9219241 (Version 2)
Quarter: 2013Q3

REPORT INFORMATION
  Report Type: Spontaneous
  Country: US (occurrence: US)
  Receive Date: 20130409
  Receipt Date: 20130925
  Transmission Date: 20140515
  Serious: Yes (Life-Threatening, Hospitalization, Disabling)
  Sender: FDA-Public Use
  Company Number: US-BAYER-2013-044386

PATIENT
  Age: 20 Year
  Sex: Female

DRUGS (16)
  1. YAZ [Suspect]
  2. YASMIN [Suspect]
  3. OCELLA [Suspect]
  4. GIANVI [Suspect]
  5. BEYAZ [Suspect]
  6. SERTRALINE HYDROCHLORIDE [Concomitant]
     Dosage: 100 MG, UNK
     Route: 048
     Dates: start: 20110906
  7. DOCUSATE SODIUM [Concomitant]
     Dosage: 100 MG, UNK
     Route: 048
     Dates: start: 20110731
  8. FERROUS SULFATE [Concomitant]
     Dosage: 325 MG, UNK
     Route: 048
     Dates: start: 20110731
  9. IBUPROFENE [Concomitant]
     Indication: DISCOMFORT
     Dosage: 800 MG, UNK
     Route: 048
     Dates: start: 20110731
  10. ACETAMINOPHEN W/OXYCODONE [Concomitant]
     Dosage: 5 MG, UNK
     Route: 048
     Dates: start: 20110731
  11. PRENATAL VITAMINS [VIT C,B5,B12,D2,B3,B6,RETINOL PALMIT,B2,B1 MONO [Concomitant]
     Dosage: UNK
     Route: 048
     Dates: start: 20110731
  12. NITROFURANTOIN [Concomitant]
     Dosage: UNK
     Route: 048
     Dates: start: 20110718
  13. FENTANYL [Concomitant]
     Indication: PAIN MANAGEMENT
  14. PERCOCET [OXYCODONE HYDROCHLORIDE,OXYCODONE TEREPHTHALATE,PARACETA [Concomitant]
     Indication: PAIN
     Dosage: 1-2 TABLETS EVRY 4 HOURS AS NEEDED
  15. LEVAQUIN [Concomitant]
  16. ZOLOFT [Concomitant]

REACTIONS (8)
  - Pulmonary embolism [Recovering/Resolving]
  - Injury [Recovering/Resolving]
  - Pain [Recovering/Resolving]
  - General physical health deterioration [Recovering/Resolving]
  - Anxiety [None]
  - Anhedonia [Recovering/Resolving]
  - Emotional distress [None]
  - Pain [None]
